FAERS Safety Report 8598247-6 (Version None)
Quarter: 2012Q3

REPORT INFORMATION
  Report Type: 
  Country: None (occurrence: None)
  Receive Date: 20120816
  Receipt Date: 20120813
  Transmission Date: 20120928
  Serious: Yes (Death, Hospitalization, Disabling, Other)
  Sender: FDA-Public Use
  Company Number: GB-B.I. PHARMACEUTICALS,INC./RIDGEFIELD-2012-UK-00860UK

PATIENT
  Sex: Female
  Weight: 45 kg

DRUGS (1)
  1. PRADAXA [Suspect]
     Indication: ATRIAL FIBRILLATION
     Dosage: 220 MG
     Route: 048
     Dates: start: 20120401, end: 20120620

REACTIONS (7)
  - HIP FRACTURE [None]
  - RENAL IMPAIRMENT [None]
  - BRONCHOPNEUMONIA [None]
  - IMMOBILISATION PROLONGED [None]
  - RENAL FUNCTION TEST ABNORMAL [None]
  - COAGULOPATHY [None]
  - FALL [None]
